FAERS Safety Report 9704780 (Version 1)
Quarter: 2013Q4

REPORT INFORMATION
  Report Type: Report from Study
  Country: IT (occurrence: IT)
  Receive Date: 20131122
  Receipt Date: 20131122
  Transmission Date: 20140711
  Serious: Yes (Other)
  Sender: FDA-Public Use
  Company Number: PHHY2013IT131072

PATIENT
  Age: 54 Year
  Sex: Female

DRUGS (4)
  1. SIGNIFOR [Suspect]
     Indication: PITUITARY-DEPENDENT CUSHING^S SYNDROME
     Dosage: 0.6 UG, BID
  2. SIGNIFOR [Suspect]
     Dosage: 0.3 MG, BID
  3. SIGNIFOR [Suspect]
     Dosage: 0.3 MG, DAILY
  4. DOSTINEX [Concomitant]

REACTIONS (8)
  - Diabetes mellitus [Not Recovered/Not Resolved]
  - Posture abnormal [Not Recovered/Not Resolved]
  - Thinking abnormal [Not Recovered/Not Resolved]
  - Gastric disorder [Not Recovered/Not Resolved]
  - Malaise [Not Recovered/Not Resolved]
  - Abdominal distension [Not Recovered/Not Resolved]
  - Diarrhoea [Recovering/Resolving]
  - Nausea [Not Recovered/Not Resolved]
